FAERS Safety Report 4479615-0 (Version None)
Quarter: 2004Q4

REPORT INFORMATION
  Report Type: 
  Country: None (occurrence: None)
  Receive Date: 20041018
  Receipt Date: 20041006
  Transmission Date: 20050328
  Serious: Yes (Other)
  Sender: FDA-Public Use
  Company Number: 2004045577

PATIENT
  Age: 74 Year
  Sex: Female

DRUGS (2)
  1. ZYRTEC [Suspect]
     Indication: ILL-DEFINED DISORDER
     Dosage: 10 MG (10 MG,1 IN 1 D), ORAL
     Route: 048
     Dates: start: 19900101, end: 20040601
  2. ACEBUTOLOL HYDROCHLORIDE (ACETBUTOLOL HYDROCHLORIDE) [Concomitant]

REACTIONS (2)
  - REACTION TO DRUG EXCIPIENT [None]
  - THROMBOCYTOPENIC PURPURA [None]
